APPROVED DRUG PRODUCT: ACYCLOVIR SODIUM
Active Ingredient: ACYCLOVIR SODIUM
Strength: EQ 50MG BASE/ML
Dosage Form/Route: INJECTABLE;INJECTION
Application: A075065 | Product #001
Applicant: HOSPIRA WORLDWIDE, INC
Approved: Feb 25, 1999 | RLD: No | RS: No | Type: DISCN